FAERS Safety Report 18177845 (Version 2)
Quarter: 2020Q3

REPORT INFORMATION
  Report Type: Report from Study
  Country: US (occurrence: US)
  Receive Date: 20200821
  Receipt Date: 20200824
  Transmission Date: 20201103
  Serious: Yes (Hospitalization)
  Sender: FDA-Public Use
  Company Number: US-ACTELION-A-NJ2020-201660

PATIENT
  Sex: Female
  Weight: 76.19 kg

DRUGS (5)
  1. VELETRI [Suspect]
     Active Substance: EPOPROSTENOL
     Indication: PULMONARY ARTERIAL HYPERTENSION
     Dosage: 26 NG/KG, PER MIN
     Route: 042
  2. VELETRI [Suspect]
     Active Substance: EPOPROSTENOL
     Dosage: 30 NG/KG, PER MIN
     Route: 042
  3. REMODULIN [Concomitant]
     Active Substance: TREPROSTINIL
  4. OPSUMIT [Suspect]
     Active Substance: MACITENTAN
     Indication: PULMONARY ARTERIAL HYPERTENSION
     Dosage: 10 MG, QD
     Route: 048
  5. TADALAFIL. [Concomitant]
     Active Substance: TADALAFIL

REACTIONS (14)
  - Nasal congestion [Unknown]
  - Oropharyngeal pain [Unknown]
  - Dyspnoea at rest [Unknown]
  - Catheter site rash [Recovering/Resolving]
  - Device related infection [Unknown]
  - Dyspnoea exertional [Unknown]
  - Hyperhidrosis [Unknown]
  - Nasopharyngitis [Unknown]
  - Catheter site erythema [Unknown]
  - Catheter site pain [Unknown]
  - Productive cough [Unknown]
  - Palpitations [Unknown]
  - Catheter site pruritus [Recovering/Resolving]
  - Catheter site related reaction [Unknown]
